FAERS Safety Report 9753708 (Version 3)
Quarter: 2015Q3

REPORT INFORMATION
  Report Type: Spontaneous
  Country: US (occurrence: US)
  Receive Date: 20131213
  Receipt Date: 20150805
  Transmission Date: 20151125
  Serious: No
  Sender: FDA-Public Use
  Company Number: US-GILEAD-2009-0026162

PATIENT
  Age: 38 Year
  Sex: Female
  Weight: 58.97 kg

DRUGS (14)
  1. NASONEX [Concomitant]
     Active Substance: MOMETASONE FUROATE
  2. SIMVASTATIN. [Concomitant]
     Active Substance: SIMVASTATIN
  3. ASCORBIC ACID. [Concomitant]
     Active Substance: ASCORBIC ACID
  4. REVATIO [Concomitant]
     Active Substance: SILDENAFIL CITRATE
  5. COUMADIN [Concomitant]
     Active Substance: WARFARIN SODIUM
  6. WARFARIN [Concomitant]
     Active Substance: WARFARIN
  7. FUROSEMIDE. [Concomitant]
     Active Substance: FUROSEMIDE
  8. SK-TETRACYCLINE [Concomitant]
  9. POTASSIUM CL [Concomitant]
     Active Substance: POTASSIUM CHLORIDE
  10. LETAIRIS [Suspect]
     Active Substance: AMBRISENTAN
     Indication: PULMONARY ARTERIAL HYPERTENSION
     Route: 048
     Dates: start: 20091023
  11. VITAMIN E [Concomitant]
     Active Substance: .ALPHA.-TOCOPHEROL
  12. ALLEGRA [Concomitant]
     Active Substance: FEXOFENADINE HYDROCHLORIDE
  13. FLOLAN [Concomitant]
     Active Substance: EPOPROSTENOL SODIUM
  14. DIGOXIN. [Concomitant]
     Active Substance: DIGOXIN

REACTIONS (2)
  - Eye oedema [Recovered/Resolved]
  - Swelling face [Recovered/Resolved]
